FAERS Safety Report 12947548 (Version 2)
Quarter: 2016Q4

REPORT INFORMATION
  Report Type: Report from Study
  Country: CA (occurrence: CA)
  Receive Date: 20161116
  Receipt Date: 20161201
  Transmission Date: 20170207
  Serious: Yes (Hospitalization, Other)
  Sender: FDA-Public Use
  Company Number: CA-TAKEDA-2016TUS020248

PATIENT
  Age: 48 Year
  Sex: Male
  Weight: 115 kg

DRUGS (2)
  1. METAMUCIL [Concomitant]
     Active Substance: PLANTAGO SEED
     Dosage: UNK
  2. VEDOLIZUMAB [Suspect]
     Active Substance: VEDOLIZUMAB
     Indication: CROHN^S DISEASE
     Dosage: 300 MG, UNK
     Route: 042
     Dates: start: 20160623

REACTIONS (4)
  - Extradural abscess [Recovering/Resolving]
  - Hyperhidrosis [Unknown]
  - Back injury [Unknown]
  - Chills [Unknown]

NARRATIVE: CASE EVENT DATE: 2016
